FAERS Safety Report 9696239 (Version 1)
Quarter: 2013Q4

REPORT INFORMATION
  Report Type: Spontaneous
  Country: CA (occurrence: CA)
  Receive Date: 20131119
  Receipt Date: 20131119
  Transmission Date: 20140711
  Serious: Yes (Hospitalization)
  Sender: FDA-Public Use
  Company Number: CA-ASTRAZENECA-2013SE83704

PATIENT
  Age: 25 Year
  Sex: Male
  Weight: 90 kg

DRUGS (6)
  1. SEROQUEL XR [Suspect]
     Route: 048
  2. CLARITHROMYCIN SANDOZ [Suspect]
     Route: 048
  3. SALBUTAMOL [Concomitant]
  4. INVEGA SUSTENNA PREFILLED SYRINGE [Concomitant]
  5. DIVALPROEX SODIUM [Concomitant]
  6. CLONAZEPAM [Concomitant]

REACTIONS (5)
  - Abnormal behaviour [Recovered/Resolved]
  - Confusional state [Recovered/Resolved]
  - Incoherent [Recovered/Resolved]
  - Blood creatine phosphokinase increased [Recovered/Resolved]
  - Dysarthria [Recovered/Resolved]
